FAERS Safety Report 9874391 (Version 2)
Quarter: 2014Q1

REPORT INFORMATION
  Report Type: Other
  Country: None (occurrence: US)
  Receive Date: 20140206
  Receipt Date: 20140206
  Transmission Date: 20141002
  Serious: No
  Sender: FDA-Public Use
  Company Number: US-ACORDA-ACO_35213_2013

PATIENT
  Sex: 0

DRUGS (2)
  1. AMPYRA [Suspect]
     Indication: PRODUCT USED FOR UNKNOWN INDICATION
     Dosage: 10 MG, BID
     Dates: start: 201303, end: 201306
  2. AMPYRA [Suspect]
     Dosage: 10 MG, BID
     Dates: start: 20130704

REACTIONS (2)
  - Gait disturbance [Unknown]
  - Drug ineffective [Unknown]
